FAERS Safety Report 6113562-3 (Version None)
Quarter: 2009Q1

REPORT INFORMATION
  Report Type: 
  Country: None (occurrence: None)
  Receive Date: 20090312
  Receipt Date: 20090303
  Transmission Date: 20090719
  Serious: Yes (Hospitalization)
  Sender: FDA-Public Use
  Company Number: DE-WYE-H08504109

PATIENT
  Age: 28 Year
  Sex: Female
  Weight: 52 kg

DRUGS (1)
  1. CEFIXIME CHEWABLE [Suspect]
     Indication: SINUSITIS
     Route: 048
     Dates: start: 20080923, end: 20080927

REACTIONS (3)
  - COLITIS [None]
  - DIARRHOEA HAEMORRHAGIC [None]
  - GASTROINTESTINAL MUCOSAL DISORDER [None]
